FAERS Safety Report 24990957 (Version 1)
Quarter: 2025Q1

REPORT INFORMATION
  Report Type: Spontaneous
  Country: MX (occurrence: None)
  Receive Date: 20250217
  Receipt Date: 20250217
  Transmission Date: 20250408
  Serious: Yes (Life-Threatening, Hospitalization, Other)
  Sender: FDA-CTU
  Company Number: None

PATIENT
  Age: 30 Year
  Sex: Female
  Weight: 68 kg

DRUGS (3)
  1. DIETARY SUPPLEMENT [Suspect]
     Active Substance: DIETARY SUPPLEMENT
     Indication: Muscle mass
     Dosage: OTHER QUANTITY : 25 DROP(S);?FREQUENCY : DAILY;?
     Route: 048
  2. ASPIRIN [Suspect]
     Active Substance: ASPIRIN
  3. IBUTAMOREN [Suspect]
     Active Substance: IBUTAMOREN

REACTIONS (3)
  - Headache [None]
  - Syncope [None]
  - Cerebrovascular accident [None]

NARRATIVE: CASE EVENT DATE: 20231104
